FAERS Safety Report 14019465 (Version 1)
Quarter: 2017Q3

REPORT INFORMATION
  Report Type: Report from Study
  Country: US (occurrence: US)
  Receive Date: 20170928
  Receipt Date: 20170928
  Transmission Date: 20171128
  Serious: Yes (Other)
  Sender: FDA-Public Use
  Company Number: US-ROCHE-1979734

PATIENT
  Sex: Male

DRUGS (25)
  1. SPIRIVA [Suspect]
     Active Substance: TIOTROPIUM BROMIDE MONOHYDRATE
     Indication: IDIOPATHIC URTICARIA
  2. ZANTAC [Concomitant]
     Active Substance: RANITIDINE HYDROCHLORIDE
     Route: 065
  3. PEPCID (UNITED STATES) [Concomitant]
     Route: 065
  4. PEPCID (UNITED STATES) [Concomitant]
     Route: 065
  5. PREDNISONE. [Concomitant]
     Active Substance: PREDNISONE
     Route: 065
  6. PANTOPRAZOLE [Concomitant]
     Active Substance: PANTOPRAZOLE
     Route: 065
  7. EPIPEN [Concomitant]
     Active Substance: EPINEPHRINE
     Dosage: 0.3 MG/0.3 ML
     Route: 065
  8. CROMOLYN [Concomitant]
     Active Substance: CROMOLYN
     Dosage: 100 MG/5 ML
     Route: 048
     Dates: start: 20160315
  9. DIPHENHYDRAMINE. [Concomitant]
     Active Substance: DIPHENHYDRAMINE
     Dosage: 2-3 CAPSULE, 4 TIMES AS NEEDED
     Route: 065
     Dates: start: 20151105
  10. ALLEGRA [Concomitant]
     Active Substance: FEXOFENADINE HYDROCHLORIDE
     Route: 065
  11. PREDNISONE. [Concomitant]
     Active Substance: PREDNISONE
     Route: 065
     Dates: start: 20151105
  12. PREDNISONE. [Concomitant]
     Active Substance: PREDNISONE
     Route: 048
     Dates: end: 20151105
  13. XOLAIR [Suspect]
     Active Substance: OMALIZUMAB
     Indication: ANAPHYLACTIC REACTION
     Route: 058
     Dates: start: 201505
  14. XOLAIR [Suspect]
     Active Substance: OMALIZUMAB
     Indication: IDIOPATHIC URTICARIA
     Dosage: DOSE: 2.4 ML
     Route: 058
     Dates: start: 20151208, end: 20161004
  15. GASTROCROM [Concomitant]
     Active Substance: CROMOLYN SODIUM
     Dosage: 2 VIALS, 2-4/DAILY
     Route: 065
  16. BENADRYL [Concomitant]
     Active Substance: DIPHENHYDRAMINE HYDROCHLORIDE
     Route: 065
  17. SPIRIVA RESPIMAT [Concomitant]
     Active Substance: TIOTROPIUM BROMIDE
     Dosage: 2.5 MCG/ACTUATION, 1-2 PUFFS DAILY
     Route: 065
     Dates: start: 20160315
  18. PROTONIX [Concomitant]
     Active Substance: PANTOPRAZOLE SODIUM
     Route: 065
  19. SPIRIVA [Suspect]
     Active Substance: TIOTROPIUM BROMIDE MONOHYDRATE
     Indication: ANAPHYLACTIC REACTION
     Dosage: 1 CAPSULE INHALED
     Route: 050
     Dates: end: 20160315
  20. ALLEGRA [Concomitant]
     Active Substance: FEXOFENADINE HYDROCHLORIDE
     Route: 065
  21. GASTROCROM [Concomitant]
     Active Substance: CROMOLYN SODIUM
     Route: 065
  22. SINGULAIR [Concomitant]
     Active Substance: MONTELUKAST SODIUM
     Route: 065
  23. PROAIR HFA [Concomitant]
     Active Substance: ALBUTEROL SULFATE
     Dosage: 90 MCG/ACTUATION, 2 PUFF INHALED, EVERY 4-6 HOURS AS NEEDED
     Route: 065
     Dates: start: 20151104, end: 20151105
  24. FAMOTIDINE. [Concomitant]
     Active Substance: FAMOTIDINE
     Route: 048
     Dates: start: 20151105
  25. FEXOFENADINE [Concomitant]
     Active Substance: FEXOFENADINE\FEXOFENADINE HYDROCHLORIDE
     Route: 048
     Dates: start: 20160315

REACTIONS (3)
  - Oropharyngeal pain [Unknown]
  - Angioedema [Unknown]
  - Anaphylactic reaction [Unknown]
